FAERS Safety Report 11829599 (Version 1)
Quarter: 2015Q4

REPORT INFORMATION
  Report Type: Spontaneous
  Country: RU (occurrence: RU)
  Receive Date: 20151212
  Receipt Date: 20151212
  Transmission Date: 20160305
  Serious: Yes (Death, Life-Threatening, Other)
  Sender: FDA-Public Use
  Company Number: RU-ASTRAZENECA-2015SF23773

PATIENT
  Age: 28924 Day
  Sex: Female
  Weight: 78 kg

DRUGS (7)
  1. EGILOC [Concomitant]
     Route: 048
  2. ASPIRIN. [Concomitant]
     Active Substance: ASPIRIN
  3. ACTRAPID [Concomitant]
     Active Substance: INSULIN HUMAN
     Dosage: 12.5
     Dates: start: 20151015, end: 20151120
  4. LOSAP [Concomitant]
     Route: 048
     Dates: start: 20151015, end: 20151120
  5. ATORVASTATIN [Concomitant]
     Active Substance: ATORVASTATIN
     Route: 048
  6. BRILINTA [Suspect]
     Active Substance: TICAGRELOR
     Indication: ACUTE CORONARY SYNDROME
     Route: 048
     Dates: start: 20151027, end: 20151120
  7. AMLODIPINE [Concomitant]
     Active Substance: AMLODIPINE BESYLATE
     Route: 048
     Dates: start: 20151015, end: 20151120

REACTIONS (2)
  - Myocardial infarction [Unknown]
  - Cardiac failure [Fatal]

NARRATIVE: CASE EVENT DATE: 20151027
